FAERS Safety Report 21454889 (Version 1)
Quarter: 2022Q4

REPORT INFORMATION
  Report Type: Report from Study
  Country: CA (occurrence: CA)
  Receive Date: 20221014
  Receipt Date: 20221014
  Transmission Date: 20230113
  Serious: Yes (Other)
  Sender: FDA-Public Use
  Company Number: CA-ABBVIE-4152064

PATIENT
  Sex: Male

DRUGS (1)
  1. HUMIRA [Suspect]
     Active Substance: ADALIMUMAB
     Indication: Crohn^s disease
     Route: 058
     Dates: start: 20200128

REACTIONS (7)
  - Spinal disorder [Unknown]
  - Hypoaesthesia [Unknown]
  - Back pain [Unknown]
  - Nervous system disorder [Unknown]
  - Gait disturbance [Unknown]
  - Balance disorder [Unknown]
  - Spinal pain [Unknown]
